FAERS Safety Report 9252549 (Version 1)
Quarter: 2013Q1

REPORT INFORMATION
  Report Type: Spontaneous
  Country: US (occurrence: None)
  Receive Date: 20130305
  Receipt Date: 20130305
  Transmission Date: 20140127
  Serious: Yes (Other)
  Sender: FDA-Public Use
  Company Number: 163-21880-12082079

PATIENT
  Age: 86 Year
  Sex: Female

DRUGS (2)
  1. REVLIMID [Suspect]
     Indication: MYELODYSPLASTIC SYNDROME
     Dosage: 1 IN 1 D
     Route: 048
     Dates: start: 20090414
  2. LOW DOSE ASPIRIN(ACETYLSALICYLIC ACID)(UNKNOWN) [Concomitant]

REACTIONS (1)
  - Thrombosis [None]
